FAERS Safety Report 14132912 (Version 10)
Quarter: 2021Q4

REPORT INFORMATION
  Report Type: Report from Study
  Country: FR (occurrence: FR)
  Receive Date: 20171027
  Receipt Date: 20211021
  Transmission Date: 20220303
  Serious: Yes (Death, Hospitalization, Other)
  Sender: FDA-Public Use
  Company Number: FR-ROCHE-2002057

PATIENT
  Age: 56 Year
  Sex: Male
  Weight: 96 kg

DRUGS (24)
  1. OBINUTUZUMAB [Suspect]
     Active Substance: OBINUTUZUMAB
     Indication: Waldenstrom^s macroglobulinaemia
     Route: 042
     Dates: start: 20170612, end: 20170612
  2. OBINUTUZUMAB [Suspect]
     Active Substance: OBINUTUZUMAB
     Route: 042
     Dates: start: 20170809, end: 20170809
  3. OBINUTUZUMAB [Suspect]
     Active Substance: OBINUTUZUMAB
     Route: 042
     Dates: start: 20171004, end: 20171004
  4. OBINUTUZUMAB [Suspect]
     Active Substance: OBINUTUZUMAB
     Route: 042
     Dates: start: 201711
  5. OBINUTUZUMAB [Suspect]
     Active Substance: OBINUTUZUMAB
     Route: 042
     Dates: start: 201712
  6. IDELALISIB [Suspect]
     Active Substance: IDELALISIB
     Indication: Waldenstrom^s macroglobulinaemia
     Route: 048
     Dates: start: 20170612, end: 20170903
  7. IDELALISIB [Suspect]
     Active Substance: IDELALISIB
     Route: 048
     Dates: start: 20171004, end: 20181227
  8. IDELALISIB [Suspect]
     Active Substance: IDELALISIB
     Route: 048
     Dates: start: 20180130
  9. AMIODARONE [Concomitant]
     Active Substance: AMIODARONE
     Indication: Product used for unknown indication
     Dosage: 1/2 DF?0.5 DOSAGE FORM
     Route: 065
  10. BISOPROLOL [Concomitant]
     Active Substance: BISOPROLOL
     Indication: Product used for unknown indication
     Route: 065
  11. ESOMEPRAZOLE. [Concomitant]
     Active Substance: ESOMEPRAZOLE MAGNESIUM
     Indication: Product used for unknown indication
     Route: 065
  12. POTASSIUM CHLORIDE [Concomitant]
     Active Substance: POTASSIUM CHLORIDE
  13. FUROSEMIDE [Concomitant]
     Active Substance: FUROSEMIDE
     Route: 042
  14. LOVENOX [Concomitant]
     Active Substance: ENOXAPARIN SODIUM
  15. VALACYCLOVIR HYDROCHLORIDE [Concomitant]
     Active Substance: VALACYCLOVIR HYDROCHLORIDE
  16. PENTACARINAT [Concomitant]
     Active Substance: PENTAMIDINE ISETHIONATE
  17. FILGRASTIM [Concomitant]
     Active Substance: FILGRASTIM
  18. BACTRIM [Concomitant]
     Active Substance: SULFAMETHOXAZOLE\TRIMETHOPRIM
     Indication: Antibiotic prophylaxis
     Route: 048
     Dates: start: 20180130
  19. RITUXIMAB [Concomitant]
     Active Substance: RITUXIMAB
     Route: 041
     Dates: start: 20190108, end: 20190109
  20. RITUXIMAB [Concomitant]
     Active Substance: RITUXIMAB
     Dosage: COMPLETED 6 COURSES OF RITUXIMAB
     Route: 042
     Dates: start: 201501, end: 201506
  21. BENDAMUSTINE [Concomitant]
     Active Substance: BENDAMUSTINE
     Route: 042
  22. ETOPOSIDE [Concomitant]
     Active Substance: ETOPOSIDE
  23. DEXAMETHASONE [Concomitant]
     Active Substance: DEXAMETHASONE
     Dosage: IN JAN-JUN/2015, COMPLETED 6 COURSES OF DEXAMETHASONE
  24. CYCLOPHOSPHAMIDE [Concomitant]
     Active Substance: CYCLOPHOSPHAMIDE
     Dosage: IN JAN-JUN/2015, COMPLETED 6 COURSES OF CYCLOPHOSPHAMIDE

REACTIONS (6)
  - Pancytopenia [Unknown]
  - Pyrexia [Unknown]
  - Febrile bone marrow aplasia [Not Recovered/Not Resolved]
  - Pyrexia [Recovered/Resolved]
  - C-reactive protein increased [Recovered/Resolved]
  - Pneumonia [Recovered/Resolved]

NARRATIVE: CASE EVENT DATE: 20170913
